FAERS Safety Report 5124478-3 (Version None)
Quarter: 2006Q4

REPORT INFORMATION
  Report Type: 
  Country: None (occurrence: None)
  Receive Date: 20061006
  Receipt Date: 20061002
  Transmission Date: 20070319
  Serious: No
  Sender: FDA-Public Use
  Company Number: B0440982A

PATIENT
  Age: 64 Year
  Sex: Male
  Weight: 74.8435 kg

DRUGS (3)
  1. AUGMENTIN '250' [Suspect]
     Indication: CHOLECYSTITIS
     Dosage: ORAL
     Route: 048
     Dates: start: 20060714, end: 20060717
  2. TADALAFIL [Concomitant]
  3. SILDENAFIL CITRATE [Concomitant]

REACTIONS (1)
  - JAUNDICE CHOLESTATIC [None]
